FAERS Safety Report 12499925 (Version 1)
Quarter: 2016Q2

REPORT INFORMATION
  Report Type: Spontaneous
  Country: US (occurrence: None)
  Receive Date: 20160624
  Receipt Date: 20160624
  Transmission Date: 20160815
  Serious: Yes (Hospitalization)
  Sender: FDA-Public Use
  Company Number: None

PATIENT
  Age: 15 Year
  Sex: Female
  Weight: 69.4 kg

DRUGS (1)
  1. SULFAMETHOXAZOLE-TMP [Suspect]
     Active Substance: SULFAMETHOXAZOLE\TRIMETHOPRIM
     Indication: ABSCESS
     Dosage: 2 TAB (SS) BID PO
     Route: 048
     Dates: start: 20160601, end: 20160608

REACTIONS (5)
  - Myalgia [None]
  - Platelet count decreased [None]
  - Pain [None]
  - Malaise [None]
  - Liver function test decreased [None]

NARRATIVE: CASE EVENT DATE: 20160609
